FAERS Safety Report 19865080 (Version 1)
Quarter: 2021Q3

REPORT INFORMATION
  Report Type: Spontaneous
  Country: PL (occurrence: PL)
  Receive Date: 20210922
  Receipt Date: 20210922
  Transmission Date: 20211014
  Serious: Yes (Other)
  Sender: FDA-Public Use
  Company Number: PL-TEVA-2021-PL-1955202

PATIENT
  Age: 9 Year
  Sex: Female

DRUGS (2)
  1. ACTINOMYCIN D [Suspect]
     Active Substance: DACTINOMYCIN
     Indication: NEPHROBLASTOMA
     Dosage: ACCORDING TO THE SIOP 2001/2006 PROTOCOL
     Route: 065
  2. VINCRISTINE [Suspect]
     Active Substance: VINCRISTINE
     Indication: NEPHROBLASTOMA
     Dosage: ACCORDING TO THE SIOP 2001/2006 PROTOCOL
     Route: 065

REACTIONS (4)
  - Polyneuropathy [Unknown]
  - Pancreatitis [Unknown]
  - Cholecystitis acute [Unknown]
  - Horner^s syndrome [Unknown]
